FAERS Safety Report 19386930 (Version 2)
Quarter: 2021Q2

REPORT INFORMATION
  Report Type: Spontaneous
  Country: PL (occurrence: PL)
  Receive Date: 20210607
  Receipt Date: 20210608
  Transmission Date: 20210717
  Serious: Yes (Other)
  Sender: FDA-Public Use
  Company Number: PL-BAYER-2021-150742

PATIENT
  Sex: Female

DRUGS (1)
  1. JAYDESS [Suspect]
     Active Substance: LEVONORGESTREL
     Dosage: 14 ?G PER DAY CONTINUOUSLY
     Route: 015
     Dates: start: 2019

REACTIONS (5)
  - Procedural pain [None]
  - Complication of device removal [None]
  - Device breakage [None]
  - Complication of device removal [None]
  - Procedural pain [None]

NARRATIVE: CASE EVENT DATE: 202105
